FAERS Safety Report 6923785-9 (Version None)
Quarter: 2010Q3

REPORT INFORMATION
  Report Type: 
  Country: None (occurrence: None)
  Receive Date: 20100813
  Receipt Date: 20100803
  Transmission Date: 20110219
  Serious: Yes (Hospitalization)
  Sender: FDA-Public Use
  Company Number: US-ELI_LILLY_AND_COMPANY-US201007001413

PATIENT
  Age: 6 Year
  Sex: Male

DRUGS (5)
  1. STRATTERA [Suspect]
     Indication: ATTENTION DEFICIT/HYPERACTIVITY DISORDER
     Dosage: 18 MG, DAILY (1/D)
     Dates: start: 20100524
  2. CONCERTA [Concomitant]
     Dosage: 54 MG, UNK
     Dates: end: 20100622
  3. CONCERTA [Concomitant]
     Dosage: 36 MG, UNK
     Dates: start: 20100622
  4. CLONIDINE [Concomitant]
     Dosage: 0.05 MG, DAILY (1/D)
     Route: 048
  5. CLONIDINE [Concomitant]
     Dosage: 0.05 MG, 2/D
     Route: 048
     Dates: start: 20100607

REACTIONS (1)
  - HYPERAMMONAEMIA [None]
